FAERS Safety Report 22139944 (Version 1)
Quarter: 2023Q1

REPORT INFORMATION
  Report Type: Spontaneous
  Country: FR (occurrence: FR)
  Receive Date: 20230327
  Receipt Date: 20230327
  Transmission Date: 20230418
  Serious: Yes (Hospitalization, Other)
  Sender: FDA-Public Use
  Company Number: None

PATIENT
  Age: 63 Year
  Sex: Female
  Weight: 59.6 kg

DRUGS (25)
  1. DOXORUBICIN [Suspect]
     Active Substance: DOXORUBICIN
     Indication: Non-Hodgkin^s lymphoma
     Dosage: 1 DF TOTAL, C1
     Route: 065
     Dates: start: 20220504, end: 20220509
  2. CYCLOPHOSPHAMIDE [Suspect]
     Active Substance: CYCLOPHOSPHAMIDE
     Indication: Non-Hodgkin^s lymphoma
     Dosage: 1 DF TOTAL, C1
     Route: 065
     Dates: start: 20220504, end: 20220509
  3. RITUXIMAB [Suspect]
     Active Substance: RITUXIMAB
     Indication: Non-Hodgkin^s lymphoma
     Dosage: 1 DF, C1, (MAMMAL/HAMSTER/CHO CELLS)
     Route: 065
     Dates: start: 20220504, end: 20220509
  4. METHOTREXATE [Suspect]
     Active Substance: METHOTREXATE
     Indication: Non-Hodgkin^s lymphoma
     Dosage: 1 DF 1 TOTAL, C1
     Route: 065
     Dates: start: 20220504, end: 20220509
  5. VINCRISTINE SULFATE [Suspect]
     Active Substance: VINCRISTINE SULFATE
     Indication: Non-Hodgkin^s lymphoma
     Dosage: 1 DF TOTAL, C1
     Route: 065
     Dates: start: 20220504, end: 20220509
  6. PHLOROGLUCINOL [Concomitant]
     Active Substance: PHLOROGLUCINOL
     Route: 065
  7. VALACYCLOVIR HYDROCHLORIDE [Concomitant]
     Active Substance: VALACYCLOVIR HYDROCHLORIDE
     Dosage: 2 DF, QD, MORNING AND EVENING THROUGHOUT THE DURATION OF THE TREATMENT
     Route: 065
  8. Transipeg [Concomitant]
     Indication: Constipation
     Route: 065
  9. PRIMPERAN [Concomitant]
     Active Substance: METOCLOPRAMIDE HYDROCHLORIDE
     Indication: Nausea
     Dosage: 10 MG, 1 TAB MAXIMUM 3 TIMES/DAY
     Route: 065
  10. BACTRIM [Concomitant]
     Active Substance: SULFAMETHOXAZOLE\TRIMETHOPRIM
     Dosage: 1 DF, 1 TAB MONDAY/ WEDNESDAY/ FRIDAY
     Route: 065
  11. SPAGULAX [Concomitant]
     Active Substance: HERBALS\PLANTAGO OVATA SEED
     Dosage: 3 DF, QD
     Route: 065
  12. Titanoreine a la lidocaine [Concomitant]
     Dosage: 2 POUR CENT
     Route: 065
  13. Temesta [Concomitant]
     Dosage: SCORED TABLET
     Route: 065
  14. ACETAMINOPHEN [Concomitant]
     Active Substance: ACETAMINOPHEN
     Indication: Pain
     Dosage: 1 G MAX IF PAIN
     Route: 065
  15. FILGRASTIM [Concomitant]
     Active Substance: FILGRASTIM
     Dosage: 30 MU/0.5 ML,  IN PRE-FILLED SYRINGE
     Route: 065
  16. DOSTINEX [Concomitant]
     Active Substance: CABERGOLINE
     Route: 065
  17. FEMARA [Concomitant]
     Active Substance: LETROZOLE
     Route: 065
  18. CHOLECALCIFEROL [Concomitant]
     Active Substance: CHOLECALCIFEROL
     Dosage: 50,000 IU, ORAL SOLUTION IN AMPOULE
     Route: 065
  19. SODIUM CITRATE\SODIUM LAURYL SULFOACETATE\SORBITOL [Concomitant]
     Active Substance: SODIUM CITRATE\SODIUM LAURYL SULFOACETATE\SORBITOL
     Route: 065
  20. HEXETIDINE TEVA [Concomitant]
     Dosage: CONSEIL, SOLUTION FOR MOUTHWASH
     Route: 065
  21. MYFORTIC [Concomitant]
     Active Substance: MYCOPHENOLATE SODIUM
     Dosage: FILM-COATED GASTRO-RESISTANT TABLET
     Route: 065
  22. REFRESH CELLUVISC [Concomitant]
     Active Substance: CARBOXYMETHYLCELLULOSE SODIUM
     Dosage: EYE DROPS IN A SINGLE-DOSE CONTAINER
     Route: 065
  23. FUNGIZONE [Concomitant]
     Active Substance: AMPHOTERICIN B
     Dosage: 10 POUR CENT
     Route: 065
  24. ESOMEPRAZOLE [Concomitant]
     Active Substance: ESOMEPRAZOLE
     Dosage: 2 DF, QD, MORNING AND EVENING THROUGHOUT THE DURATION OF THE TREATMENT
     Route: 065
  25. TIMOLOL MALEATE\TRAVOPROST [Concomitant]
     Active Substance: TIMOLOL MALEATE\TRAVOPROST
     Dosage: 40 MICROGRAMS/ML + 5 MG/ML
     Route: 065

REACTIONS (2)
  - Acute kidney injury [Recovered/Resolved]
  - Vomiting [Recovered/Resolved]

NARRATIVE: CASE EVENT DATE: 20220509
